FAERS Safety Report 9682793 (Version 2)
Quarter: 2013Q4

REPORT INFORMATION
  Report Type: Spontaneous
  Country: JP (occurrence: JP)
  Receive Date: 20131112
  Receipt Date: 20131127
  Transmission Date: 20140711
  Serious: Yes (Hospitalization)
  Sender: FDA-Public Use
  Company Number: PHHY2013JP127179

PATIENT
  Age: 77 Year
  Sex: Female

DRUGS (3)
  1. NEORAL [Suspect]
     Indication: IDIOPATHIC PULMONARY FIBROSIS
     Dosage: 150 MG, DAILY
     Route: 048
     Dates: start: 2007
  2. PREDNISOLONE [Suspect]
     Indication: IDIOPATHIC PULMONARY FIBROSIS
     Dosage: 20 MG, UNK
     Dates: start: 2007
  3. OXYGEN [Concomitant]
     Indication: IDIOPATHIC PULMONARY FIBROSIS
     Dates: start: 2007

REACTIONS (8)
  - Pneumothorax [Recovered/Resolved]
  - Sepsis [Unknown]
  - Pyrexia [Unknown]
  - Chills [Unknown]
  - Helicobacter infection [Unknown]
  - Interstitial lung disease [Unknown]
  - Dyspnoea [Unknown]
  - Bacteraemia [Unknown]
